FAERS Safety Report 5405868-8 (Version None)
Quarter: 2007Q3

REPORT INFORMATION
  Report Type: 
  Country: None (occurrence: None)
  Receive Date: 20070806
  Receipt Date: 20070727
  Transmission Date: 20080115
  Serious: Yes (Hospitalization)
  Sender: FDA-Public Use
  Company Number: US-JNJFOC-20070800029

PATIENT
  Sex: Female
  Weight: 73.94 kg

DRUGS (12)
  1. DURAGESIC-100 [Suspect]
     Route: 062
  2. DURAGESIC-100 [Suspect]
     Dosage: 12.5 UG/HR AND 25 UG/HR
     Route: 062
  3. DURAGESIC-100 [Suspect]
     Route: 062
  4. DURAGESIC-100 [Suspect]
     Indication: PAIN
     Route: 062
  5. KLONOPIN [Concomitant]
     Indication: HYPERSOMNIA
     Route: 048
  6. ELAVIL [Concomitant]
     Indication: SLEEP DISORDER
     Route: 048
  7. NEURONTIN [Concomitant]
     Indication: PAIN
     Route: 048
  8. LIPITOR [Concomitant]
     Indication: BLOOD CHOLESTEROL
     Route: 048
  9. ACIPHEX [Concomitant]
     Indication: GASTROINTESTINAL DISORDER
     Route: 048
  10. SKELAXIN [Concomitant]
     Indication: MUSCLE RELAXANT THERAPY
     Route: 048
  11. MAXALT [Concomitant]
     Indication: MIGRAINE WITH AURA
     Route: 048
  12. DEMEROL [Concomitant]
     Indication: PAIN
     Route: 048

REACTIONS (8)
  - ABDOMINAL PAIN [None]
  - ARTHROPATHY [None]
  - FEELING JITTERY [None]
  - INAPPROPRIATE SCHEDULE OF DRUG ADMINISTRATION [None]
  - INSOMNIA [None]
  - PAIN [None]
  - PSYCHOMOTOR HYPERACTIVITY [None]
  - SPINAL COLUMN STENOSIS [None]
